FAERS Safety Report 24669498 (Version 1)
Quarter: 2024Q4

REPORT INFORMATION
  Report Type: Other
  Country: CN (occurrence: CN)
  Receive Date: 20241127
  Receipt Date: 20241127
  Transmission Date: 20250115
  Serious: Yes (Other)
  Sender: JIANGSU HENGRUI MEDICINE CO., LTD.
  Company Number: CN-Jiangsu Hengrui Medicine Co., Ltd.-2166062

PATIENT
  Age: 55 Year
  Sex: Male
  Weight: 82.7 kg

DRUGS (5)
  1. OXALIPLATIN [Suspect]
     Active Substance: OXALIPLATIN
     Indication: Adenocarcinoma gastric
     Dates: start: 20241014, end: 20241114
  2. CAPECITABINE [Suspect]
     Active Substance: CAPECITABINE
     Dates: start: 20241014, end: 20241014
  3. DEXTROSE [Concomitant]
     Active Substance: DEXTROSE MONOHYDRATE
     Dates: start: 20241014, end: 20241014
  4. SODIUM CHLORIDE [Concomitant]
     Active Substance: SODIUM CHLORIDE
     Dates: start: 20241014, end: 20241014
  5. SINTILIMAB [Suspect]
     Active Substance: SINTILIMAB
     Dates: start: 20241014, end: 20241014

REACTIONS (1)
  - Cholestatic liver injury [Recovering/Resolving]

NARRATIVE: CASE EVENT DATE: 20241111
